FAERS Safety Report 18309020 (Version 1)
Quarter: 2020Q3

REPORT INFORMATION
  Report Type: Spontaneous
  Country: US (occurrence: US)
  Receive Date: 20200924
  Receipt Date: 20200924
  Transmission Date: 20201103
  Serious: Yes (Hospitalization)
  Sender: FDA-Public Use
  Company Number: US-TEVA-2020-US-1829871

PATIENT
  Sex: Female

DRUGS (8)
  1. VANCOMYCIN [Suspect]
     Active Substance: VANCOMYCIN
     Indication: ENDOCARDITIS
  2. DAPTOMYCIN. [Concomitant]
     Active Substance: DAPTOMYCIN
     Indication: ENDOCARDITIS
  3. PREDNISONE. [Concomitant]
     Active Substance: PREDNISONE
     Indication: ENDOCARDITIS
  4. CICLOSPORIN [Suspect]
     Active Substance: CYCLOSPORINE
  5. PREDNISONE. [Concomitant]
     Active Substance: PREDNISONE
     Indication: STAPHYLOCOCCAL INFECTION
     Route: 065
  6. VANCOMYCIN [Suspect]
     Active Substance: VANCOMYCIN
     Indication: STAPHYLOCOCCAL INFECTION
     Dosage: PLANNED 6?WEEK COURSE
     Route: 042
  7. DAPTOMYCIN. [Concomitant]
     Active Substance: DAPTOMYCIN
     Indication: STAPHYLOCOCCAL INFECTION
     Route: 065
  8. CICLOSPORIN [Suspect]
     Active Substance: CYCLOSPORINE
     Indication: DRUG REACTION WITH EOSINOPHILIA AND SYSTEMIC SYMPTOMS
     Dosage: 6 MG/KG DAILY; TWICE DAILY
     Route: 065

REACTIONS (2)
  - Treatment failure [Unknown]
  - Drug reaction with eosinophilia and systemic symptoms [Recovering/Resolving]
